FAERS Safety Report 8429887-2 (Version None)
Quarter: 2012Q2

REPORT INFORMATION
  Report Type: 
  Country: None (occurrence: None)
  Receive Date: 20120612
  Receipt Date: 20120602
  Transmission Date: 20120825
  Serious: Yes (Hospitalization)
  Sender: FDA-Public Use
  Company Number: DE-ABBOTT-12P-062-0942002-00

PATIENT
  Age: 5 Month

DRUGS (5)
  1. LOPINAVIR AND RITONAVIR [Suspect]
     Indication: ANTIRETROVIRAL THERAPY
  2. LOPINAVIR AND RITONAVIR [Suspect]
     Dosage: DOSE ADJUSTMENT (NOT SPECIFIED)
  3. LAMIVUDINE [Suspect]
     Indication: ANTIRETROVIRAL THERAPY
  4. ZIDOVUDINE [Suspect]
     Indication: ANTIRETROVIRAL THERAPY
  5. NEVIRAPINE [Suspect]
     Indication: ANTIRETROVIRAL THERAPY

REACTIONS (3)
  - IMMUNE RECONSTITUTION SYNDROME [None]
  - NEPHROTIC SYNDROME [None]
  - DRUG LEVEL DECREASED [None]
